FAERS Safety Report 5779213-2 (Version None)
Quarter: 2008Q2

REPORT INFORMATION
  Report Type: 
  Country: None (occurrence: None)
  Receive Date: 20080617
  Receipt Date: 20080609
  Transmission Date: 20081010
  Serious: Yes (Other)
  Sender: FDA-Public Use
  Company Number: WAES 0806FRA00006

PATIENT
  Age: 43 Year
  Sex: Female

DRUGS (7)
  1. ISENTRESS [Suspect]
     Indication: HIV INFECTION
     Dosage: 400 MG/BID PO
     Route: 048
     Dates: start: 20080123
  2. LAMIVUDINE [Suspect]
     Indication: HIV INFECTION
     Dosage: 150 MG/BID PO
     Route: 048
     Dates: start: 20051010
  3. LOPINAVIR AND RITONAVIR [Suspect]
     Indication: HIV INFECTION
     Dosage: 2 TAB/BID PO
     Route: 048
     Dates: start: 20051010
  4. METHADONE HCL [Suspect]
     Indication: DRUG ABUSE
     Dosage: 45 MG/PO
     Route: 048
     Dates: start: 19940622
  5. ATENOLOL [Suspect]
     Indication: CARDIOMYOPATHY
     Dosage: 1 TAB/DAILY PO
     Route: 048
     Dates: start: 19960812
  6. GABAPENTIN [Suspect]
     Indication: EPILEPSY
     Dosage: 400 MG/DAILY PO
     Route: 048
     Dates: start: 20030416
  7. [THERAPY UNSPECIFIED] [Suspect]
     Indication: DEPRESSION
     Dosage: PO
     Route: 048

REACTIONS (1)
  - GAMMA-GLUTAMYLTRANSFERASE INCREASED [None]
